FAERS Safety Report 5084748-4 (Version None)
Quarter: 2006Q3

REPORT INFORMATION
  Report Type: 
  Country: None (occurrence: None)
  Receive Date: 20060821
  Receipt Date: 20060807
  Transmission Date: 20061208
  Serious: Yes (Other)
  Sender: FDA-Public Use
  Company Number: GBWYE749019JUN06

PATIENT
  Sex: Female

DRUGS (9)
  1. ENBREL [Suspect]
     Indication: RHEUMATOID ARTHRITIS
     Route: 058
     Dates: start: 20040101
  2. ENBREL [Suspect]
     Route: 058
  3. PREDNISOLONE [Concomitant]
     Indication: RHEUMATOID ARTHRITIS
     Dosage: 5MG, FREQUENCY UNKNOWN
     Route: 048
  4. PROPRANOLOL [Concomitant]
     Indication: MIGRAINE
     Dosage: VARAIBLE
     Route: 048
     Dates: start: 20000101
  5. ETODOLAC [Concomitant]
     Indication: RHEUMATOID ARTHRITIS
     Dosage: 600MG, FREQUENCY UNKNOWN
     Route: 048
     Dates: start: 20030101
  6. DIHYDROCODEINE [Concomitant]
     Indication: PAIN
     Dosage: VARIABLE
     Route: 048
     Dates: start: 20030101
  7. AZATHIOPRINE [Concomitant]
     Indication: RHEUMATOID ARTHRITIS
     Dosage: 150MG DAILY
     Route: 048
     Dates: start: 20040101
  8. AZATHIOPRINE [Concomitant]
     Dosage: 100MG DAILY
     Route: 048
  9. TRAMADOL HCL [Concomitant]
     Indication: PAIN
     Dosage: 50MG, FREQUENCY UNKNOWN
     Route: 048
     Dates: start: 20030101

REACTIONS (3)
  - COMPLICATION OF DELIVERY [None]
  - DRUG EXPOSURE DURING PREGNANCY [None]
  - PREGNANCY [None]
